FAERS Safety Report 15559500 (Version 2)
Quarter: 2018Q4

REPORT INFORMATION
  Report Type: Spontaneous
  Country: ES (occurrence: ES)
  Receive Date: 20181029
  Receipt Date: 20181031
  Transmission Date: 20190205
  Serious: Yes (Other)
  Sender: FDA-Public Use
  Company Number: ES-009507513-1810ESP008303

PATIENT

DRUGS (16)
  1. CIPROFLOXACIN. [Suspect]
     Active Substance: CIPROFLOXACIN
  2. PROPAFENONE HYDROCHLORIDE. [Suspect]
     Active Substance: PROPAFENONE HYDROCHLORIDE
  3. IBUPROFEN. [Suspect]
     Active Substance: IBUPROFEN
  4. MINOCYCLINE [Suspect]
     Active Substance: MINOCYCLINE\MINOCYCLINE HYDROCHLORIDE
  5. EZETIMIBE (+) ATORVASTATIN [Suspect]
     Active Substance: ATORVASTATIN\EZETIMIBE
     Dosage: UNK
     Route: 048
     Dates: start: 2012
  6. IRBESARTAN. [Suspect]
     Active Substance: IRBESARTAN
     Indication: PRODUCT USED FOR UNKNOWN INDICATION
     Dosage: UNK
     Route: 065
     Dates: start: 2012
  7. MOXIFLOXACIN HYDROCHLORIDE. [Suspect]
     Active Substance: MOXIFLOXACIN HYDROCHLORIDE
  8. FLUVASTATIN SODIUM. [Suspect]
     Active Substance: FLUVASTATIN SODIUM
  9. ORLISTAT. [Suspect]
     Active Substance: ORLISTAT
  10. ATORVASTATIN [Suspect]
     Active Substance: ATORVASTATIN
  11. AMOXICILLIN (+) CLAVULANATE POTASSIUM [Suspect]
     Active Substance: AMOXICILLIN\CLAVULANATE POTASSIUM
  12. OMEPRAZOLE. [Suspect]
     Active Substance: OMEPRAZOLE
  13. EFALIZUMAB [Suspect]
     Active Substance: EFALIZUMAB
  14. NITROFURANTOIN. [Suspect]
     Active Substance: NITROFURANTOIN
     Indication: PRODUCT USED FOR UNKNOWN INDICATION
     Route: 065
     Dates: start: 2012
  15. INFLIXIMAB [Suspect]
     Active Substance: INFLIXIMAB
  16. MELOXICAM. [Suspect]
     Active Substance: MELOXICAM

REACTIONS (2)
  - Autoimmune hepatitis [Unknown]
  - Drug-induced liver injury [Unknown]
